FAERS Safety Report 23987035 (Version 1)
Quarter: 2024Q2

REPORT INFORMATION
  Report Type: Spontaneous
  Country: US (occurrence: None)
  Receive Date: 20240618
  Receipt Date: 20240618
  Transmission Date: 20240716
  Serious: Yes (Other)
  Sender: FDA-Public Use
  Company Number: None

PATIENT
  Age: 56 Year
  Sex: Male
  Weight: 106 kg

DRUGS (4)
  1. TECHNETIUM TC-99M SESTAMIBI [Suspect]
     Active Substance: TECHNETIUM TC-99M SESTAMIBI
     Indication: Scan myocardial perfusion
     Dates: start: 20240617, end: 20240617
  2. TECHNETIUM TC-99M SESTAMIBI [Suspect]
     Active Substance: TECHNETIUM TC-99M SESTAMIBI
     Indication: Tachycardia
  3. TECHNETIUM TC-99M SESTAMIBI [Suspect]
     Active Substance: TECHNETIUM TC-99M SESTAMIBI
     Indication: Palpitations
  4. seatmibi [Concomitant]
     Dates: start: 20240617, end: 20240617

REACTIONS (3)
  - Hypotension [None]
  - Seizure like phenomena [None]
  - Contrast media allergy [None]

NARRATIVE: CASE EVENT DATE: 20240617
